FAERS Safety Report 7434594-9 (Version None)
Quarter: 2011Q2

REPORT INFORMATION
  Report Type: 
  Country: None (occurrence: None)
  Receive Date: 20110425
  Receipt Date: 20110420
  Transmission Date: 20111010
  Serious: Yes (Other)
  Sender: FDA-Public Use
  Company Number: US-ABBOTT-11P-163-0721225-00

PATIENT
  Sex: Female
  Weight: 63.56 kg

DRUGS (2)
  1. VITAMINS [Concomitant]
     Indication: PRODUCT USED FOR UNKNOWN INDICATION
  2. HUMIRA [Suspect]
     Indication: COLITIS ULCERATIVE
     Dates: start: 20100101

REACTIONS (3)
  - VAGINAL HAEMORRHAGE [None]
  - PYREXIA [None]
  - UTERINE LEIOMYOMA [None]
